FAERS Safety Report 8619565-9 (Version None)
Quarter: 2012Q3

REPORT INFORMATION
  Report Type: 
  Country: None (occurrence: None)
  Receive Date: 20120824
  Receipt Date: 20120412
  Transmission Date: 20120928
  Serious: No
  Sender: FDA-Public Use
  Company Number: US-ASTRAZENECA-2012SE23993

PATIENT
  Age: 77 Year
  Sex: Male
  Weight: 97.5 kg

DRUGS (2)
  1. SYMBICORT [Suspect]
     Indication: ASTHMA
     Dosage: TWO INHALATIONS, BID
     Route: 055
     Dates: start: 20120101
  2. ANTACIDS [Concomitant]
     Indication: IRRITABLE BOWEL SYNDROME

REACTIONS (10)
  - COUGH [None]
  - DYSPHONIA [None]
  - URTICARIA [None]
  - INCREASED UPPER AIRWAY SECRETION [None]
  - PRURITUS [None]
  - CHILLS [None]
  - HYPOAESTHESIA [None]
  - OROPHARYNGEAL PAIN [None]
  - MUSCULAR WEAKNESS [None]
  - PAIN [None]
